FAERS Safety Report 12816674 (Version 1)
Quarter: 2016Q4

REPORT INFORMATION
  Report Type: Spontaneous
  Country: US (occurrence: US)
  Receive Date: 20161005
  Receipt Date: 20161005
  Transmission Date: 20170207
  Serious: No
  Sender: FDA-Public Use
  Company Number: US-AMGEN-USASP2015109290

PATIENT
  Age: 58 Year
  Sex: Female

DRUGS (1)
  1. PROLIA [Suspect]
     Active Substance: DENOSUMAB
     Indication: PRODUCT USED FOR UNKNOWN INDICATION
     Dosage: UNK, UNK
     Route: 065

REACTIONS (9)
  - Rash pruritic [Unknown]
  - Impaired healing [Unknown]
  - Pruritus [Unknown]
  - Secretion discharge [Not Recovered/Not Resolved]
  - Skin ulcer [Unknown]
  - Pain of skin [Unknown]
  - Rash [Unknown]
  - Rash erythematous [Unknown]
  - Scab [Unknown]

NARRATIVE: CASE EVENT DATE: 20150801
